FAERS Safety Report 7551825-5 (Version None)
Quarter: 2011Q2

REPORT INFORMATION
  Report Type: 
  Country: None (occurrence: None)
  Receive Date: 20110616
  Receipt Date: 20110609
  Transmission Date: 20111010
  Serious: Yes (Other)
  Sender: FDA-Public Use
  Company Number: US-BAYER-2011-006572

PATIENT
  Age: 47 Year
  Sex: Male
  Weight: 59.3 kg

DRUGS (32)
  1. TRASYLOL [Suspect]
     Indication: HEART VALVE REPLACEMENT
  2. ANCEF [Concomitant]
     Dosage: UNK
     Dates: start: 20030908
  3. NORVASC [Concomitant]
  4. DOPAMINE HCL [Concomitant]
     Dosage: UNK
     Dates: start: 20030908
  5. EPHEDRINE [Concomitant]
     Dosage: UNK
     Dates: start: 20030908
  6. NIPRIDE [Concomitant]
     Dosage: UNK
     Route: 042
     Dates: start: 20030908
  7. PROTAMINE SULFATE [Concomitant]
     Dosage: UNK
     Dates: start: 20030908
  8. ETOMIDATE [Concomitant]
     Dosage: UNK
     Dates: start: 20030908
  9. LABETALOL HCL [Concomitant]
     Dosage: UNK
     Route: 042
     Dates: start: 20030908
  10. LEVAQUIN [Concomitant]
     Dosage: 250 MG EVERY OTHER DAY
     Route: 048
  11. PHENYLEPHRINE HCL [Concomitant]
     Dosage: UNK
     Dates: start: 20030908
  12. RED BLOOD CELLS [Concomitant]
     Dosage: 2 U, ONCE
     Route: 042
     Dates: start: 20030908
  13. PRIMACOR [Concomitant]
     Dosage: UNK
     Dates: start: 20030908
  14. COREG [Concomitant]
     Dosage: 12.5 MG, BID
     Route: 048
  15. ZOCOR [Concomitant]
     Dosage: 20 MG, QD
     Route: 048
  16. ISORDIL [Concomitant]
     Dosage: 20 MG, TID
     Route: 048
  17. GLUCOTROL [Concomitant]
     Dosage: 5 MG, BID
     Route: 048
  18. AVAPRO [Concomitant]
     Dosage: 150 MG, QD
     Route: 048
  19. NITROGLYCERIN [Concomitant]
     Route: 048
  20. FENTANYL-100 [Concomitant]
     Dosage: UNK
     Dates: start: 20030908
  21. CORLOPAM [Concomitant]
     Dosage: UNK
     Dates: start: 20030908
  22. MAGNESIUM SULFATE [Concomitant]
     Dosage: UNK
     Dates: start: 20030908
  23. MANNITOL [Concomitant]
     Dosage: UNK
     Dates: start: 20030908
  24. ACETYLSALICYLIC ACID SRT [Concomitant]
  25. SODIUM BICARBONATE [Concomitant]
     Dosage: 250 MG, BID
     Route: 048
  26. ALBUMIN (HUMAN) [Concomitant]
     Dosage: UNK
     Dates: start: 20030908
  27. HEPARIN [Concomitant]
     Dosage: UNK
     Dates: start: 20030908
  28. VASOPRESSIN [Concomitant]
     Dosage: UNK
     Dates: start: 20030908
  29. TRASYLOL [Suspect]
     Indication: CORONARY ARTERY BYPASS
     Dosage: 200 ML CARDIOPULMONARY BYPASS PRIME
     Route: 042
     Dates: start: 20030908, end: 20030908
  30. AVANDIA [Concomitant]
     Dosage: 2 MG, QD
     Route: 048
  31. LASIX [Concomitant]
     Dosage: 40 MG, QD
     Route: 048
  32. NOREPINEPHRINE BITARTRATE [Concomitant]
     Dosage: UNK
     Dates: start: 20030908

REACTIONS (8)
  - HYPERTENSION [None]
  - NEPHROPATHY [None]
  - INJURY [None]
  - PAIN [None]
  - RENAL FAILURE [None]
  - STRESS [None]
  - EMOTIONAL DISTRESS [None]
  - ANXIETY [None]
